FAERS Safety Report 4988624-4 (Version None)
Quarter: 2006Q2

REPORT INFORMATION
  Report Type: 
  Country: None (occurrence: None)
  Receive Date: 20060502
  Receipt Date: 20060428
  Transmission Date: 20061013
  Serious: Yes (Death, Hospitalization, Other)
  Sender: FDA-Public Use
  Company Number: EE-BRISTOL-MYERS SQUIBB COMPANY-13359815

PATIENT
  Age: 33 Year
  Sex: Female

DRUGS (8)
  1. CDDP [Suspect]
     Indication: GASTRIC CANCER
     Route: 041
     Dates: start: 20060413, end: 20060413
  2. FLUOROURACIL [Suspect]
     Indication: GASTRIC CANCER
     Route: 041
     Dates: start: 20060413, end: 20060418
  3. GRANISETRON [Concomitant]
     Indication: VOMITING
     Route: 042
     Dates: start: 20060413, end: 20060417
  4. APREPITANT [Concomitant]
     Indication: VOMITING
     Dosage: DOSE: 125/80 MG PER DAY
     Route: 048
     Dates: start: 20060413, end: 20060415
  5. DEXAMETHASONE [Concomitant]
     Indication: VOMITING
     Route: 042
     Dates: start: 20060413, end: 20060413
  6. DEXAMETHASONE [Concomitant]
     Route: 048
     Dates: start: 20060414, end: 20060415
  7. METOCLOPRAMIDE [Concomitant]
     Indication: VOMITING
     Route: 048
     Dates: start: 20060413, end: 20060423
  8. DEXAMETHASONE [Concomitant]
     Indication: NAUSEA
     Route: 048
     Dates: start: 20060414, end: 20060415

REACTIONS (3)
  - FEBRILE NEUTROPENIA [None]
  - MUCOSAL INFLAMMATION [None]
  - SEPTIC SHOCK [None]
